FAERS Safety Report 4370745-0 (Version None)
Quarter: 2004Q2

REPORT INFORMATION
  Report Type: 
  Country: None (occurrence: None)
  Receive Date: 20040601
  Receipt Date: 20040521
  Transmission Date: 20050107
  Serious: Yes (Death)
  Sender: FDA-Public Use
  Company Number: STA-AE-04-MTX-210

PATIENT
  Age: 80 Year
  Sex: Male

DRUGS (7)
  1. METHOTREXATE [Suspect]
     Indication: RHEUMATOID ARTHRITIS
     Dosage: 15 MG 1X PER 1 WK, ORAL
     Route: 048
     Dates: start: 20020601, end: 20021201
  2. DICLOFENAC (DICLOFENAC) [Concomitant]
  3. RANITIDINE [Concomitant]
  4. ASPIRIN [Concomitant]
  5. CO-DYDRAMOL (DHIHYDROCODEINE BITRATRATE/PARACETAMOL) [Concomitant]
  6. FOLIC ACID [Concomitant]
  7. INSULIN [Concomitant]

REACTIONS (3)
  - CARDIOPULMONARY FAILURE [None]
  - DYSPHONIA [None]
  - PULMONARY FIBROSIS [None]
